FAERS Safety Report 4415829-3 (Version None)
Quarter: 2004Q3

REPORT INFORMATION
  Report Type: 
  Country: None (occurrence: None)
  Receive Date: 20040730
  Receipt Date: 20040716
  Transmission Date: 20050211
  Serious: Yes (Death, Life-Threatening, Hospitalization, Disabling, Other)
  Sender: FDA-Public Use
  Company Number: 237146

PATIENT
  Sex: Male
  Weight: 3.3 kg

DRUGS (4)
  1. NOVORAPID PENFILL(R) 3 ML(INSULIN ASPART) SOLUTION FOR INJECTION, 100U [Suspect]
     Indication: DIABETES MELLITUS INSULIN-DEPENDENT
     Dosage: IU, INTRAUTERINE
     Route: 015
     Dates: start: 20031108, end: 20040516
  2. INSULATARD PENFILL (INSULIN HUMAN) SUSPENSION FOR INJECTION, 100 IU/ML [Concomitant]
  3. BENSYLPENICILLIN (BENZYLPENCILLIN) [Concomitant]
  4. BUPIVACAINE [Concomitant]

REACTIONS (14)
  - APGAR SCORE LOW [None]
  - BRADYCARDIA NEONATAL [None]
  - BRAIN DAMAGE [None]
  - BROW PRESENTATION [None]
  - CAESAREAN SECTION [None]
  - CEREBRAL ISCHAEMIA [None]
  - CONTUSION [None]
  - CONVULSION NEONATAL [None]
  - DRUG EXPOSURE DURING PREGNANCY [None]
  - FOETAL DISTRESS SYNDROME [None]
  - HYPOXIC ENCEPHALOPATHY [None]
  - NEONATAL HYPOXIA [None]
  - OBSTRUCTED LABOUR [None]
  - OXYGEN SATURATION DECREASED [None]
